FAERS Safety Report 6012327-0 (Version None)
Quarter: 2008Q4

REPORT INFORMATION
  Report Type: 
  Country: None (occurrence: None)
  Receive Date: 20081218
  Receipt Date: 20080827
  Transmission Date: 20090506
  Serious: No
  Sender: FDA-Public Use
  Company Number: US-ASTRAZENECA-2008UW13155

PATIENT
  Age: 17268 Day
  Sex: Female
  Weight: 96.2 kg

DRUGS (7)
  1. SYMBICORT [Suspect]
     Route: 055
  2. ALBUTEROL [Concomitant]
  3. QVAR 40 [Concomitant]
  4. VERAPAMIL [Concomitant]
  5. RANITIDINE [Concomitant]
  6. SPIRONOLACTONE [Concomitant]
  7. LORATADINE [Concomitant]

REACTIONS (2)
  - HYPERTENSION [None]
  - LOCAL SWELLING [None]
